FAERS Safety Report 8418215-4 (Version None)
Quarter: 2012Q2

REPORT INFORMATION
  Report Type: 
  Country: None (occurrence: None)
  Receive Date: 20120607
  Receipt Date: 20120530
  Transmission Date: 20120825
  Serious: Yes (Other)
  Sender: FDA-Public Use
  Company Number: US-SANOFI-AVENTIS-2012SA033115

PATIENT
  Sex: Male

DRUGS (2)
  1. SOLOSTAR [Suspect]
     Dates: start: 20040101
  2. LANTUS [Suspect]
     Dosage: 8 TO 15 UNITS TWICE A DAY
     Route: 058
     Dates: start: 20040101

REACTIONS (4)
  - DIABETIC COMA [None]
  - DIABETIC EYE DISEASE [None]
  - BLOOD GLUCOSE INCREASED [None]
  - ILL-DEFINED DISORDER [None]
